FAERS Safety Report 8437333-8 (Version None)
Quarter: 2012Q2

REPORT INFORMATION
  Report Type: 
  Country: None (occurrence: None)
  Receive Date: 20120614
  Receipt Date: 20120308
  Transmission Date: 20120825
  Serious: Yes (Other)
  Sender: FDA-Public Use
  Company Number: US-AMGEN-USASP2012015058

PATIENT
  Age: 85 Year
  Sex: Female

DRUGS (8)
  1. VITAMIN C                          /00008001/ [Concomitant]
  2. NADOLOL [Concomitant]
  3. CALCIUM [Concomitant]
  4. DIOVAN [Concomitant]
  5. FISH OIL [Concomitant]
  6. LIPITOR [Concomitant]
  7. VITAMIN D [Concomitant]
  8. PROLIA [Suspect]
     Indication: OSTEOPOROSIS POSTMENOPAUSAL
     Dosage: 60 MG, Q6MO
     Dates: start: 20110820

REACTIONS (1)
  - ATRIAL FIBRILLATION [None]
